FAERS Safety Report 21003945 (Version 1)
Quarter: 2022Q2

REPORT INFORMATION
  Report Type: Spontaneous
  Country: US (occurrence: None)
  Receive Date: 20220624
  Receipt Date: 20220624
  Transmission Date: 20220721
  Serious: Yes (Other)
  Sender: FDA-Public Use
  Company Number: None

PATIENT
  Age: 66 Year
  Sex: Female
  Weight: 83.25 kg

DRUGS (4)
  1. MOLNUPIRAVIR [Suspect]
     Active Substance: MOLNUPIRAVIR
     Indication: COVID-19
     Dosage: OTHER QUANTITY : 4 TABLET(S);?FREQUENCY : TWICE A DAY;?
     Route: 048
     Dates: start: 20220622, end: 20220623
  2. CORTISONE CREAM [Concomitant]
  3. ZYRTEC [Concomitant]
     Active Substance: CETIRIZINE HYDROCHLORIDE
  4. MOTRIN [Concomitant]
     Active Substance: IBUPROFEN

REACTIONS (4)
  - Diarrhoea [None]
  - Diarrhoea [None]
  - Unevaluable event [None]
  - Skin burning sensation [None]

NARRATIVE: CASE EVENT DATE: 20220623
